FAERS Safety Report 24798862 (Version 1)
Quarter: 2025Q1

REPORT INFORMATION
  Report Type: Spontaneous
  Country: TR (occurrence: TR)
  Receive Date: 20250102
  Receipt Date: 20250102
  Transmission Date: 20250409
  Serious: Yes (Other)
  Sender: JUBILANT
  Company Number: TR-JUBILANT CADISTA PHARMACEUTICALS-2024TR001891

PATIENT
  Age: 17 Year
  Sex: Male

DRUGS (2)
  1. PANTOPRAZOLE SODIUM [Suspect]
     Active Substance: PANTOPRAZOLE SODIUM
     Indication: Nausea
     Route: 065
  2. PANTOPRAZOLE SODIUM [Suspect]
     Active Substance: PANTOPRAZOLE SODIUM
     Indication: Abdominal pain

REACTIONS (1)
  - Tubulointerstitial nephritis [Recovering/Resolving]
